FAERS Safety Report 8161211-5 (Version None)
Quarter: 2012Q1

REPORT INFORMATION
  Report Type: 
  Country: None (occurrence: None)
  Receive Date: 20120103
  Receipt Date: 20110915
  Transmission Date: 20120608
  Serious: No
  Sender: FDA-Public Use
  Company Number: AE-2011-001562

PATIENT
  Age: 48 Year
  Sex: Female

DRUGS (5)
  1. PEGINTERFERON (PEGINTERFERON ALFA-2A) [Concomitant]
  2. RIBAVIRIN [Concomitant]
  3. CELEXA [Concomitant]
  4. DEPAKOTE [Concomitant]
  5. INCIVEK [Suspect]
     Dosage: 2250 MG (750 MG, 3 IN 1 D), ORAL
     Route: 048
     Dates: start: 20110909

REACTIONS (7)
  - ANORECTAL DISCOMFORT [None]
  - METAMORPHOPSIA [None]
  - VERTIGO [None]
  - PRURITUS [None]
  - CONFUSIONAL STATE [None]
  - FATIGUE [None]
  - HAEMORRHOIDS [None]
